FAERS Safety Report 9157133 (Version 1)
Quarter: 2013Q1

REPORT INFORMATION
  Report Type: Spontaneous
  Country: DE (occurrence: None)
  Receive Date: 20130308
  Receipt Date: 20130308
  Transmission Date: 20140127
  Serious: Yes (Death, Congenital Anomaly)
  Sender: FDA-Public Use
  Company Number: DSM-2013-00280

PATIENT
  Sex: Male

DRUGS (1)
  1. OLMESARTAN MEDOXOMIL [Suspect]
     Indication: FOETAL EXPOSURE DURING PREGNANCY
     Dosage: PREGNANCY WEEK 0 - PREGNANCY WEEK 30+4
     Route: 015

REACTIONS (6)
  - Oligohydramnios [None]
  - Vena cava thrombosis [None]
  - Renal vein thrombosis [None]
  - Stillbirth [None]
  - Joint contracture [None]
  - Maternal drugs affecting foetus [None]
